FAERS Safety Report 9270830 (Version 1)
Quarter: 2013Q2

REPORT INFORMATION
  Report Type: Spontaneous
  Country: US (occurrence: US)
  Receive Date: 20130503
  Receipt Date: 20130503
  Transmission Date: 20140414
  Serious: No
  Sender: FDA-Public Use
  Company Number: US-009507513-1304USA015432

PATIENT
  Age: 8 Year
  Sex: Female
  Weight: 19.48 kg

DRUGS (1)
  1. CLARITIN CHEWABLE TABLETS [Suspect]
     Indication: SEASONAL ALLERGY
     Dosage: 40 MG, UNKNOWN
     Route: 048
     Dates: start: 20130418

REACTIONS (2)
  - Overdose [Recovering/Resolving]
  - No adverse event [Unknown]
